FAERS Safety Report 5018899-7 (Version None)
Quarter: 2006Q2

REPORT INFORMATION
  Report Type: 
  Country: None (occurrence: None)
  Receive Date: 20060531
  Receipt Date: 20060522
  Transmission Date: 20061013
  Serious: Yes (Hospitalization)
  Sender: FDA-Public Use
  Company Number: 2006066740

PATIENT
  Age: 45 Year
  Sex: Male
  Weight: 109 kg

DRUGS (10)
  1. SUTENT [Suspect]
     Indication: METASTATIC RENAL CELL CARCINOMA
     Dosage: (50 MG,)
     Dates: start: 20060401, end: 20060517
  2. MORPHINE [Concomitant]
  3. XOPENEX [Concomitant]
  4. ZOFRAN [Concomitant]
  5. PROMETHAZINE [Concomitant]
  6. LORAZEPAM [Concomitant]
  7. MS CONTIN [Concomitant]
  8. ALBUTEROL [Concomitant]
  9. ADVAIR DISKUS 100/50 [Concomitant]
  10. MIRALAX [Concomitant]

REACTIONS (4)
  - CONSTIPATION [None]
  - MUSCULOSKELETAL CHEST PAIN [None]
  - NAUSEA [None]
  - PULMONARY EMBOLISM [None]
